FAERS Safety Report 4405071-4 (Version None)
Quarter: 2004Q3

REPORT INFORMATION
  Report Type: 
  Country: None (occurrence: None)
  Receive Date: 20040716
  Receipt Date: 20040705
  Transmission Date: 20050211
  Serious: Yes (Hospitalization, Other)
  Sender: FDA-Public Use
  Company Number: DEU-2004-0000908

PATIENT
  Age: 35 Year
  Sex: Male

DRUGS (6)
  1. THEOPHYLLINE (THEOPHYLLINE) CR TABLET [Suspect]
     Dosage: 6 GRAM,SINGLE, ORAL
     Route: 048
  2. PAPAVERETUM (OPIUM ALKALOIDS TOTAL) [Suspect]
     Dosage: 5 MG/HR, SINGLE
  3. CHARCOAL, ACTIVATED (CHARCOAL, ACTIVATED) [Suspect]
     Dosage: 200
  4. SORBITOL (SORBITOL) [Suspect]
     Dosage: 150 ML, Q4H
  5. VERAPAMIL [Suspect]
     Dosage: 15
  6. PANCURONIUM BROMIDE [Concomitant]

REACTIONS (12)
  - ABDOMINAL DISTENSION [None]
  - FLATULENCE [None]
  - HYPERGLYCAEMIA [None]
  - HYPERHIDROSIS [None]
  - HYPOKALAEMIA [None]
  - INTENTIONAL OVERDOSE [None]
  - INTESTINAL HYPOMOTILITY [None]
  - INTESTINAL OBSTRUCTION [None]
  - SINUS TACHYCARDIA [None]
  - SUPRAVENTRICULAR TACHYCARDIA [None]
  - VOMITING [None]
  - WHITE BLOOD CELL COUNT DECREASED [None]
